FAERS Safety Report 8177245 (Version 7)
Quarter: 2013Q3

REPORT INFORMATION
  Report Type: Report from Study
  Country: NL (occurrence: NL)
  Receive Date: 20111012
  Receipt Date: 20130919
  Transmission Date: 20140515
  Serious: Yes (Hospitalization)
  Sender: FDA-Public Use
  Company Number: NL-AMGEN-NLDCT2011051281

PATIENT
  Age: 64 Year
  Sex: Female
  Weight: 54.9 kg

DRUGS (6)
  1. DENOSUMAB [Suspect]
     Indication: BREAST CANCER
     Dosage: 120 MG, UNK
     Route: 058
     Dates: start: 20110715
  2. 5 FU [Concomitant]
     Dosage: UNK
     Route: 042
     Dates: start: 20110624, end: 20110805
  3. EPIRUBICINE [Concomitant]
     Dosage: UNK
     Route: 042
     Dates: start: 20110624, end: 20110805
  4. CYCLOPHOSPHAMIDE [Concomitant]
     Dosage: UNK
     Route: 042
     Dates: start: 20110624, end: 20110805
  5. TAXOTERE [Concomitant]
     Dosage: UNK
     Route: 042
     Dates: start: 20110624
  6. CALCICHEW D3 [Concomitant]
     Dosage: UNK
     Route: 048
     Dates: start: 20110711

REACTIONS (1)
  - Pyrexia [Recovered/Resolved]
